FAERS Safety Report 4745760-5 (Version None)
Quarter: 2005Q3

REPORT INFORMATION
  Report Type: 
  Country: None (occurrence: None)
  Receive Date: 20050816
  Receipt Date: 20050809
  Transmission Date: 20060218
  Serious: Yes (Other)
  Sender: FDA-Public Use
  Company Number: JP-BRISTOL-MYERS SQUIBB COMPANY-13072178

PATIENT
  Age: 59 Year
  Sex: Male

DRUGS (1)
  1. TAXOL [Suspect]
     Indication: THYMOMA
     Route: 042

REACTIONS (1)
  - APLASIA PURE RED CELL [None]
